FAERS Safety Report 7018040-5 (Version None)
Quarter: 2010Q3

REPORT INFORMATION
  Report Type: 
  Country: None (occurrence: None)
  Receive Date: 20100928
  Receipt Date: 20100913
  Transmission Date: 20110219
  Serious: Yes (Life-Threatening, Hospitalization)
  Sender: FDA-Public Use
  Company Number: CH-ASTRAZENECA-2010SE45029

PATIENT
  Age: 33 Year
  Sex: Male

DRUGS (8)
  1. PROPOFOL [Suspect]
     Indication: GENERAL ANAESTHESIA
     Route: 042
     Dates: start: 20100621, end: 20100621
  2. ACUPAN [Concomitant]
     Dosage: 10 MILLIGRAM
  3. DROPERIDOL [Concomitant]
  4. KETALAR [Concomitant]
  5. PERFALGAN [Concomitant]
  6. RAPIDOCAINE [Concomitant]
  7. ULTIVA [Concomitant]
  8. VOLTAREN [Concomitant]

REACTIONS (6)
  - ANAPHYLACTIC SHOCK [None]
  - FACE OEDEMA [None]
  - HYPOTENSION [None]
  - OXYGEN SATURATION DECREASED [None]
  - RASH [None]
  - TYPE I HYPERSENSITIVITY [None]
